FAERS Safety Report 6385088-3 (Version None)
Quarter: 2009Q4

REPORT INFORMATION
  Report Type: 
  Country: None (occurrence: None)
  Receive Date: 20091002
  Receipt Date: 20090923
  Transmission Date: 20100525
  Serious: Yes (Other)
  Sender: FDA-Public Use
  Company Number: NL-ASTRAZENECA-2009SE16958

PATIENT
  Age: 76 Year
  Sex: Female

DRUGS (10)
  1. OMEPRAZOLE [Suspect]
     Indication: RHEUMATOID ARTHRITIS
     Dates: start: 19850101
  2. ALENDRONATE SODIUM [Suspect]
     Indication: PROPHYLAXIS
     Route: 048
     Dates: start: 19990801
  3. ALENDRONATE SODIUM [Suspect]
     Route: 048
     Dates: end: 20080201
  4. PREDNISONE [Suspect]
     Indication: RHEUMATOID ARTHRITIS
     Dates: start: 19960301, end: 19990101
  5. PREDNISONE [Suspect]
     Dates: start: 19990101
  6. METHOTREXATE [Suspect]
     Indication: RHEUMATOID ARTHRITIS
     Dates: start: 19990101, end: 20070101
  7. DICLOFENAC SODIUM [Concomitant]
     Indication: RHEUMATOID ARTHRITIS
     Dates: start: 19850101
  8. GOLD [Concomitant]
     Indication: RHEUMATOID ARTHRITIS
     Dates: start: 19850101
  9. PENICILLAMINE [Concomitant]
     Indication: RHEUMATOID ARTHRITIS
     Dates: start: 19850101
  10. INFLIXIMAB [Concomitant]
     Indication: RHEUMATOID ARTHRITIS
     Dosage: 200 MG EVERY TWO WEEKS FOR A TOTAL OF 8 WEEKS, REPEATED THREE TIMES
     Route: 017
     Dates: start: 20040101, end: 20040101

REACTIONS (1)
  - FEMUR FRACTURE [None]
